FAERS Safety Report 13153379 (Version 1)
Quarter: 2017Q1

REPORT INFORMATION
  Report Type: Spontaneous
  Country: US (occurrence: US)
  Receive Date: 20170126
  Receipt Date: 20170126
  Transmission Date: 20170428
  Serious: No
  Sender: FDA-Public Use
  Company Number: PHEH2017US002609

PATIENT
  Sex: Male

DRUGS (1)
  1. COSENTYX [Suspect]
     Active Substance: SECUKINUMAB
     Indication: PRODUCT USED FOR UNKNOWN INDICATION
     Route: 065

REACTIONS (7)
  - Rash generalised [Unknown]
  - Tachycardia [Unknown]
  - Skin striae [Unknown]
  - Skin irritation [Unknown]
  - Insomnia [Unknown]
  - Mechanical urticaria [Unknown]
  - Muscle spasms [Unknown]
